FAERS Safety Report 8369096-9 (Version None)
Quarter: 2012Q2

REPORT INFORMATION
  Report Type: 
  Country: None (occurrence: None)
  Receive Date: 20120518
  Receipt Date: 20120514
  Transmission Date: 20120825
  Serious: Yes (Other)
  Sender: FDA-Public Use
  Company Number: US-PFIZER INC-2012117260

PATIENT
  Sex: Female
  Weight: 78 kg

DRUGS (6)
  1. DEPO-PROVERA [Suspect]
     Indication: OFF LABEL USE
     Dosage: UNK, ONCE IN THREE MONTHS
     Route: 030
     Dates: start: 20110901
  2. DEPO-PROVERA [Suspect]
     Indication: ENDOMETRIOSIS
  3. XANAX [Concomitant]
     Dosage: UNK
  4. RESTORIL [Concomitant]
     Dosage: UNK
  5. WELLBUTRIN [Concomitant]
     Dosage: UNK
  6. BENICAR [Concomitant]
     Dosage: UNK

REACTIONS (2)
  - WEIGHT INCREASED [None]
  - ARTHRALGIA [None]
